FAERS Safety Report 17767666 (Version 2)
Quarter: 2020Q2

REPORT INFORMATION
  Report Type: Spontaneous
  Country: TR (occurrence: TR)
  Receive Date: 20200511
  Receipt Date: 20200519
  Transmission Date: 20200714
  Serious: Yes (Life-Threatening, Hospitalization, Other)
  Sender: FDA-Public Use
  Company Number: TR-TAKEDA-2020TEU004502

PATIENT
  Age: 24 Year
  Sex: Female

DRUGS (4)
  1. METHYLPREDNISOLONE. [Suspect]
     Active Substance: METHYLPREDNISOLONE
     Indication: PRODUCT USED FOR UNKNOWN INDICATION
     Dosage: 120 MILLIGRAM
     Route: 042
  2. EPINEPHRINE. [Suspect]
     Active Substance: EPINEPHRINE
     Indication: PRODUCT USED FOR UNKNOWN INDICATION
     Dosage: 0.5 MILLIGRAM
     Route: 030
  3. LANSPORAZOLE [Suspect]
     Active Substance: LANSOPRAZOLE
     Indication: DYSPEPSIA
     Dosage: 30 MILLIGRAM
     Route: 048
  4. DIPHENHYDRAMINE. [Suspect]
     Active Substance: DIPHENHYDRAMINE
     Indication: PRURITUS
     Dosage: 45.5 MILLIGRAM
     Route: 042

REACTIONS (2)
  - Anaphylactic reaction [Recovering/Resolving]
  - Skin wound [Recovering/Resolving]
